FAERS Safety Report 12130984 (Version 1)
Quarter: 2016Q1

REPORT INFORMATION
  Report Type: Spontaneous
  Country: PL (occurrence: PL)
  Receive Date: 20160301
  Receipt Date: 20160301
  Transmission Date: 20160526
  Serious: Yes (Hospitalization)
  Sender: FDA-Public Use
  Company Number: PL-TEVA-637273ISR

PATIENT
  Age: 5 Month
  Sex: Female
  Weight: 5.5 kg

DRUGS (1)
  1. CECLOR [Suspect]
     Active Substance: CEFACLOR
     Indication: BRONCHITIS
     Dosage: 120.5 MILLIGRAM DAILY;
     Route: 048
     Dates: start: 20160207, end: 20160211

REACTIONS (2)
  - Neutropenia [Not Recovered/Not Resolved]
  - Lymphocytosis [Not Recovered/Not Resolved]

NARRATIVE: CASE EVENT DATE: 20160211
